FAERS Safety Report 7684897-8 (Version None)
Quarter: 2011Q3

REPORT INFORMATION
  Report Type: 
  Country: None (occurrence: None)
  Receive Date: 20110810
  Receipt Date: 20110524
  Transmission Date: 20111222
  Serious: No
  Sender: FDA-Public Use
  Company Number: USA/USA/11/0018488

PATIENT
  Age: 68 Year
  Sex: Male
  Weight: 113.3993 kg

DRUGS (10)
  1. HYDROCODONE BITARTRATE + ACETAMINOPHEN [Concomitant]
  2. ASPIRIN [Concomitant]
  3. CELEBREX [Concomitant]
  4. TOPROL-XL [Concomitant]
  5. VYTORIN [Concomitant]
  6. ZOLOFT [Concomitant]
  7. LANSOPRAZOLE [Suspect]
     Indication: GASTROOESOPHAGEAL REFLUX DISEASE
     Dosage: 30 MG, 1 IN 1 D, ORAL
     Route: 048
     Dates: start: 20110401
  8. ZESTRIL [Concomitant]
  9. THYROID TAB [Concomitant]
  10. TRICOR [Concomitant]

REACTIONS (4)
  - DRUG INEFFECTIVE [None]
  - PRODUCT QUALITY ISSUE [None]
  - SKIN BURNING SENSATION [None]
  - ERUCTATION [None]
